FAERS Safety Report 9838971 (Version 1)
Quarter: 2014Q1

REPORT INFORMATION
  Report Type: Spontaneous
  Country: DK (occurrence: DK)
  Receive Date: 20140123
  Receipt Date: 20140123
  Transmission Date: 20141002
  Serious: Yes (Hospitalization)
  Sender: FDA-Public Use
  Company Number: DK-GE HEALTHCARE MEDICAL DIAGNOSTICS-VISP-E2B_00000048

PATIENT
  Age: 56 Year
  Sex: Female

DRUGS (8)
  1. VISIPAQUE [Suspect]
     Indication: PRODUCT USED FOR UNKNOWN INDICATION
     Dosage: DOSE NOT REPORTED
     Route: 042
     Dates: start: 20130910, end: 20130910
  2. VISIPAQUE [Suspect]
     Indication: DIAGNOSTIC PROCEDURE
  3. EXTAVIA [Concomitant]
  4. VIBEDEN [Concomitant]
  5. TRILEPTAL [Concomitant]
     Dosage: 300+0+0+600 MG
  6. CIPRALEX [Concomitant]
  7. LANSOPRAZOL [Concomitant]
  8. OXYNORM [Concomitant]

REACTIONS (5)
  - Hypersensitivity [Recovered/Resolved]
  - Dermatitis bullous [Recovered/Resolved]
  - Pruritus [Recovered/Resolved]
  - Face oedema [Recovered/Resolved]
  - Rash generalised [Recovered/Resolved]
